FAERS Safety Report 4345029-7 (Version None)
Quarter: 2004Q2

REPORT INFORMATION
  Report Type: 
  Country: None (occurrence: None)
  Receive Date: 20040420
  Receipt Date: 20040406
  Transmission Date: 20050107
  Serious: Yes (Hospitalization)
  Sender: FDA-Public Use
  Company Number: 2004AP01902

PATIENT
  Age: 75 Year
  Sex: Female

DRUGS (2)
  1. XYLOCAINE [Suspect]
     Indication: LOCALISED OSTEOARTHRITIS
     Dosage: 2 ML IJ
     Route: 014
     Dates: start: 20001010, end: 20040302
  2. ARTZ [Suspect]
     Indication: LOCALISED OSTEOARTHRITIS
     Dates: start: 20001010, end: 20040302

REACTIONS (1)
  - ARTHRITIS BACTERIAL [None]
